FAERS Safety Report 21068472 (Version 1)
Quarter: 2022Q3

REPORT INFORMATION
  Report Type: Spontaneous
  Country: US (occurrence: US)
  Receive Date: 20220712
  Receipt Date: 20220712
  Transmission Date: 20221027
  Serious: Yes (Hospitalization)
  Sender: FDA-Public Use
  Company Number: US-MYLANLABS-2022M1051748

PATIENT
  Age: 24 Year
  Sex: Female

DRUGS (1)
  1. ZONISAMIDE [Suspect]
     Active Substance: ZONISAMIDE
     Indication: Epilepsy
     Dosage: UNK
     Route: 065

REACTIONS (4)
  - Varicose vein [Recovered/Resolved]
  - Renal disorder [Recovered/Resolved]
  - Nephrocalcinosis [Recovered/Resolved]
  - Maternal exposure during pregnancy [Recovered/Resolved]
